FAERS Safety Report 8658227 (Version 4)
Quarter: 2012Q4

REPORT INFORMATION
  Report Type: 
  Country: JP (occurrence: JP)
  Receive Date: 20120710
  Receipt Date: 20121025
  Transmission Date: 20130627
  Serious: Yes (Life-Threatening, Hospitalization)
  Sender: FDA-Public Use
  Company Number: JP-GLAXOSMITHKLINE-B0813034A

PATIENT
  Age: 59 Year
  Sex: Female

DRUGS (7)
  1. PAXIL [Suspect]
     Indication: DEPRESSION
     Dosage: 10MG Three times per day
     Route: 048
     Dates: end: 20110515
  2. SOLANAX [Concomitant]
     Dosage: .4MG Three times per day
     Route: 048
     Dates: end: 20110514
  3. DEPROMEL [Concomitant]
     Dosage: 75MG Three times per day
     Route: 048
     Dates: end: 20110514
  4. TASMOLIN [Concomitant]
     Route: 048
     Dates: end: 20110514
  5. CONSTAN [Concomitant]
     Route: 048
     Dates: start: 20110514, end: 20110515
  6. LUVOX [Concomitant]
     Route: 048
     Dates: start: 20110514, end: 20110515
  7. AKINETON [Concomitant]
     Dosage: 2MG Three times per day
     Route: 048
     Dates: start: 20110514, end: 20110515

REACTIONS (10)
  - Electrocardiogram QT prolonged [Recovered/Resolved]
  - Torsade de pointes [Recovered/Resolved]
  - Ventricular extrasystoles [Unknown]
  - Long QT syndrome [Recovered/Resolved]
  - Syncope [Unknown]
  - Electrocardiogram T wave inversion [Unknown]
  - Arrhythmia [Unknown]
  - Dizziness [Unknown]
  - Cardiac arrest [Unknown]
  - Femur fracture [Unknown]
